FAERS Safety Report 8392409-9 (Version None)
Quarter: 2012Q2

REPORT INFORMATION
  Report Type: 
  Country: None (occurrence: None)
  Receive Date: 20120529
  Receipt Date: 20120514
  Transmission Date: 20120825
  Serious: Yes (Other)
  Sender: FDA-Public Use
  Company Number: US-WATSON-2012-08463

PATIENT
  Age: 30 Year
  Sex: Female

DRUGS (1)
  1. HYDROXYPROGESTERONE CAPROATE [Suspect]
     Indication: PREMATURE DELIVERY
     Dosage: UNK
     Route: 065

REACTIONS (1)
  - AUTOIMMUNE PROGESTERONE DERMATITIS [None]
